FAERS Safety Report 4948578-3 (Version None)
Quarter: 2006Q1

REPORT INFORMATION
  Report Type: 
  Country: None (occurrence: None)
  Receive Date: 20060320
  Receipt Date: 20031219
  Transmission Date: 20060701
  Serious: Yes (Hospitalization)
  Sender: FDA-Public Use
  Company Number: FR-MERCK-0312FRA00069

PATIENT
  Age: 88 Year
  Sex: Female

DRUGS (4)
  1. SINGULAIR [Suspect]
     Indication: ASTHMA
     Route: 048
     Dates: start: 20030929, end: 20031017
  2. FUROSEMIDE [Concomitant]
     Route: 048
     Dates: start: 20030929
  3. RIFAMPIN [Concomitant]
     Indication: PULMONARY TUBERCULOSIS
     Route: 048
     Dates: start: 20030709, end: 20031003
  4. ISONIAZID [Concomitant]
     Indication: PULMONARY TUBERCULOSIS
     Route: 048
     Dates: start: 20030709, end: 20031003

REACTIONS (2)
  - PULMONARY OEDEMA [None]
  - THROMBOCYTOPENIA [None]
